FAERS Safety Report 5907261-8 (Version None)
Quarter: 2008Q4

REPORT INFORMATION
  Report Type: 
  Country: None (occurrence: None)
  Receive Date: 20081003
  Receipt Date: 20080926
  Transmission Date: 20090506
  Serious: Yes (Other)
  Sender: FDA-Public Use
  Company Number: PHBS2008GB05855

PATIENT
  Age: 49 Year
  Sex: Male

DRUGS (2)
  1. CYCLOSPORINE [Suspect]
     Indication: CONJUNCTIVITIS
     Dosage: UNK
     Dates: start: 20030301
  2. PREDNISONE [Concomitant]
     Indication: CONJUNCTIVITIS
     Dosage: UNK
     Dates: start: 20030301

REACTIONS (4)
  - CATARACT OPERATION [None]
  - EYE INFECTION STAPHYLOCOCCAL [None]
  - INTRAOCULAR LENS IMPLANT [None]
  - VITRECTOMY [None]
